FAERS Safety Report 24031152 (Version 4)
Quarter: 2025Q2

REPORT INFORMATION
  Report Type: Spontaneous
  Country: US (occurrence: US)
  Receive Date: 20240628
  Receipt Date: 20250402
  Transmission Date: 20250717
  Serious: No
  Sender: SANOFI AVENTIS
  Company Number: US-SA-SAC20240627000528

PATIENT
  Age: 72 Year
  Sex: Female

DRUGS (2)
  1. KEVZARA [Suspect]
     Active Substance: SARILUMAB
     Indication: Polymyalgia rheumatica
     Dosage: 200 MG, QOW
     Route: 058
     Dates: start: 202406
  2. FLECAINIDE [Concomitant]
     Active Substance: FLECAINIDE

REACTIONS (7)
  - Hypertonic bladder [Unknown]
  - Melanocytic naevus [Unknown]
  - Paraesthesia [Unknown]
  - Influenza like illness [Unknown]
  - Urinary tract infection [Unknown]
  - Arthralgia [Unknown]
  - Drug ineffective [Unknown]

NARRATIVE: CASE EVENT DATE: 20240101
